FAERS Safety Report 7935907-1 (Version None)
Quarter: 2011Q4

REPORT INFORMATION
  Report Type: 
  Country: None (occurrence: None)
  Receive Date: 20111121
  Receipt Date: 20111107
  Transmission Date: 20120403
  Serious: Yes (Other)
  Sender: FDA-Public Use
  Company Number: EU-2011-10221

PATIENT
  Age: 75 Year
  Sex: Male
  Weight: 72 kg

DRUGS (7)
  1. PLETAL [Suspect]
     Indication: POOR PERIPHERAL CIRCULATION
     Dosage: 200 MG MILLIGRAM(S), DAILY DOSE, ORAL
     Route: 048
     Dates: start: 20101201, end: 20110601
  2. ATORVASTATINA (ATORVASTATIN CALCIUM) [Concomitant]
     Dosage: ORAL
     Route: 048
  3. ALENDRONATE SODIUM [Concomitant]
  4. CALCIUM CARBONATE [Concomitant]
  5. CORTISONE (CORTISONE ACETATE) [Concomitant]
  6. CLOPIDOGREL [Concomitant]
     Dosage: ORAL
     Route: 048
  7. ACETAMINOPHEN [Concomitant]

REACTIONS (2)
  - DRUG INTERACTION [None]
  - HAEMATURIA [None]
